FAERS Safety Report 5724313-6 (Version None)
Quarter: 2008Q2

REPORT INFORMATION
  Report Type: 
  Country: None (occurrence: None)
  Receive Date: 20080430
  Receipt Date: 20080421
  Transmission Date: 20081010
  Serious: Yes (Death, Hospitalization, Other)
  Sender: FDA-Public Use
  Company Number: FR-PFIZER INC-2007032975

PATIENT
  Sex: Male
  Weight: 63 kg

DRUGS (12)
  1. VFEND [Suspect]
     Indication: OROPHARYNGEAL CANDIDIASIS
     Route: 048
     Dates: start: 20031017, end: 20040625
  2. VFEND [Suspect]
     Dates: start: 20041209, end: 20050801
  3. VFEND [Suspect]
     Dates: start: 20050901, end: 20061109
  4. BACTRIM DS [Concomitant]
     Route: 048
  5. VALGANCICLOVIR HCL [Concomitant]
     Dosage: DAILY DOSE:2MG
     Route: 048
  6. AZADOSE [Concomitant]
     Route: 048
  7. CAELYX [Concomitant]
     Indication: KAPOSI'S SARCOMA
     Route: 042
  8. FUZEON [Concomitant]
     Route: 058
  9. VIREAD [Concomitant]
     Indication: HIV INFECTION
     Route: 048
  10. EPIVIR [Concomitant]
  11. KALETRA [Concomitant]
     Indication: HIV INFECTION
     Route: 048
  12. INVIRASE [Concomitant]
     Indication: HIV INFECTION
     Route: 048

REACTIONS (2)
  - PHOTOSENSITIVITY REACTION [None]
  - SQUAMOUS CELL CARCINOMA [None]
